FAERS Safety Report 7009369-5 (Version None)
Quarter: 2010Q3

REPORT INFORMATION
  Report Type: 
  Country: None (occurrence: None)
  Receive Date: 20100921
  Receipt Date: 20100906
  Transmission Date: 20110219
  Serious: Yes (Hospitalization)
  Sender: FDA-Public Use
  Company Number: VAL_00460_2010

PATIENT
  Age: 14 Year
  Sex: Male

DRUGS (3)
  1. CALCITRIOL [Suspect]
     Indication: HYPOPARATHYROIDISM
     Dosage: (0.25 UG BID), (0.25 UG QD)
  2. CALCIUM (CALCIUM) [Suspect]
     Indication: HYPOPARATHYROIDISM
     Dosage: (DF ORAL)
     Route: 048
  3. L-THYROXINE /00068001/ [Concomitant]

REACTIONS (12)
  - ALANINE AMINOTRANSFERASE INCREASED [None]
  - BLOOD ALKALINE PHOSPHATASE INCREASED [None]
  - BLOOD PHOSPHORUS INCREASED [None]
  - BLOOD PRESSURE DECREASED [None]
  - CONSTIPATION [None]
  - DECREASED APPETITE [None]
  - ELECTROCARDIOGRAM QT SHORTENED [None]
  - EXTRASYSTOLES [None]
  - HAEMOGLOBIN DECREASED [None]
  - HEADACHE [None]
  - HYPERCALCAEMIA [None]
  - RESTLESSNESS [None]
